FAERS Safety Report 5292074-3 (Version None)
Quarter: 2007Q2

REPORT INFORMATION
  Report Type: 
  Country: None (occurrence: None)
  Receive Date: 20070403
  Receipt Date: 20070320
  Transmission Date: 20071010
  Serious: Yes (Other)
  Sender: FDA-Public Use
  Company Number: 154237ISR

PATIENT
  Age: 32 Year
  Sex: Female

DRUGS (2)
  1. METRONIDAZOLE [Suspect]
     Dosage: 400 MG ORAL
     Route: 048
     Dates: start: 20061123, end: 20061125
  2. OFLOXACIN [Suspect]
     Dosage: 400 MG ORAL
     Route: 048
     Dates: start: 20061123, end: 20061125

REACTIONS (1)
  - ANAPHYLACTIC REACTION [None]
